FAERS Safety Report 8048199-2 (Version None)
Quarter: 2012Q1

REPORT INFORMATION
  Report Type: 
  Country: None (occurrence: None)
  Receive Date: 20120117
  Receipt Date: 20120111
  Transmission Date: 20120608
  Serious: Yes (Hospitalization, Other)
  Sender: FDA-Public Use
  Company Number: US-JNJFOC-20100808196

PATIENT
  Sex: Female

DRUGS (1)
  1. LEVAQUIN [Suspect]
     Indication: RESPIRATORY TRACT INFECTION
     Route: 048
     Dates: start: 20040603, end: 20051231

REACTIONS (4)
  - BURSA INJURY [None]
  - TENDON DISORDER [None]
  - ROTATOR CUFF SYNDROME [None]
  - TENDONITIS [None]
